FAERS Safety Report 24594799 (Version 1)
Quarter: 2024Q4

REPORT INFORMATION
  Report Type: Spontaneous
  Country: US (occurrence: None)
  Receive Date: 20241108
  Receipt Date: 20241108
  Transmission Date: 20250114
  Serious: Yes (Other)
  Sender: Public
  Company Number: None

PATIENT
  Age: 65 Year
  Sex: 0
  Weight: 68.4 kg

DRUGS (1)
  1. HIZENTRA [Suspect]
     Active Substance: HUMAN IMMUNOGLOBULIN G
     Indication: Immunodeficiency common variable
     Dosage: 20 G GRAM(S)  Q2W SUBCUTANEOUS?
     Route: 058
     Dates: start: 20240504, end: 20241022

REACTIONS (3)
  - Urinary tract infection [None]
  - Enterobacter infection [None]
  - Product contamination microbial [None]

NARRATIVE: CASE EVENT DATE: 20241024
